FAERS Safety Report 25766371 (Version 1)
Quarter: 2025Q3

REPORT INFORMATION
  Report Type: Spontaneous
  Country: EU (occurrence: EU)
  Receive Date: 20250905
  Receipt Date: 20250905
  Transmission Date: 20251020
  Serious: Yes (Hospitalization, Other)
  Sender: BAYER HEALTHCARE PHARMACEUTICALS INC.
  Company Number: EU-BAYER-2025A117435

PATIENT
  Age: 18 Year
  Sex: Female

DRUGS (1)
  1. DIENOGEST\ETHINYL ESTRADIOL [Suspect]
     Active Substance: DIENOGEST\ETHINYL ESTRADIOL
     Indication: Dysmenorrhoea
     Route: 048

REACTIONS (2)
  - Brain oedema [Recovered/Resolved]
  - Product use in unapproved indication [None]
